FAERS Safety Report 19773904 (Version 2)
Quarter: 2021Q4

REPORT INFORMATION
  Report Type: Spontaneous
  Country: US (occurrence: US)
  Receive Date: 20210901
  Receipt Date: 20211008
  Transmission Date: 20220303
  Serious: No
  Sender: FDA-Public Use
  Company Number: 2021A681397

PATIENT
  Age: 69 Year
  Sex: Male
  Weight: 94.8 kg

DRUGS (8)
  1. BYDUREON BCISE [Suspect]
     Active Substance: EXENATIDE
     Indication: Type 2 diabetes mellitus
     Route: 058
     Dates: start: 2021
  2. BYDUREON [Suspect]
     Active Substance: EXENATIDE
     Indication: Type 2 diabetes mellitus
     Route: 058
     Dates: end: 2021
  3. AMLOD BENAZ [Concomitant]
     Indication: Blood pressure measurement
     Dosage: UNKNOWN DAILY DOSE
     Route: 065
  4. EZETIM SIMVA [Concomitant]
     Indication: Blood cholesterol
     Dosage: UNKNOWN DAILY DOSE
     Route: 065
  5. FENOFIBRATE [Concomitant]
     Active Substance: FENOFIBRATE
     Indication: Blood triglycerides
     Dosage: DAILY UNKNOWN DOSE
     Route: 065
  6. GLYBURIDE AND METFORMIN COMBINATION [Concomitant]
     Indication: Blood glucose
     Dosage: UNKNOWN DOSE TWICE DAILY
  7. HYDROCHLOROTHIAZIDE [Concomitant]
     Active Substance: HYDROCHLOROTHIAZIDE
     Indication: Blood pressure measurement
     Dosage: UNKNOWN DAILY DOSE
     Route: 065
  8. JARDIANCE [Concomitant]
     Active Substance: EMPAGLIFLOZIN
     Indication: Blood glucose
     Dosage: UNKNOWN DAILY DOSE
     Route: 065

REACTIONS (6)
  - Injection site pain [Unknown]
  - Device use issue [Unknown]
  - Incorrect dose administered by device [Unknown]
  - Wrong technique in device usage process [Not Recovered/Not Resolved]
  - Device malfunction [Unknown]
  - Device leakage [Unknown]

NARRATIVE: CASE EVENT DATE: 20210101
